FAERS Safety Report 8133867-4 (Version None)
Quarter: 2012Q1

REPORT INFORMATION
  Report Type: 
  Country: None (occurrence: None)
  Receive Date: 20120213
  Receipt Date: 20120202
  Transmission Date: 20120608
  Serious: Yes (Other)
  Sender: FDA-Public Use
  Company Number: DE-ELI_LILLY_AND_COMPANY-DE201110007152

PATIENT
  Age: 80 Year
  Sex: Female

DRUGS (4)
  1. VOLTAREN [Concomitant]
  2. CALCIMAGON-D 3 [Concomitant]
  3. ANALGESICS [Concomitant]
     Dosage: UNK, PRN
  4. FORTEO [Suspect]
     Indication: OSTEOPOROSIS
     Dosage: UNK, QD
     Route: 058
     Dates: start: 20100804

REACTIONS (3)
  - NECK PAIN [None]
  - SKIN CANCER [None]
  - CHOKING [None]
